FAERS Safety Report 10063826 (Version 1)
Quarter: 2014Q2

REPORT INFORMATION
  Report Type: Report from Study
  Country: BY (occurrence: BY)
  Receive Date: 20140408
  Receipt Date: 20140408
  Transmission Date: 20141212
  Serious: Yes (Other)
  Sender: FDA-Public Use
  Company Number: BY-ROCHE-1371546

PATIENT
  Sex: 0

DRUGS (2)
  1. INTERFERON ALFA-2A [Suspect]
     Indication: HEPATITIS B
     Route: 058
  2. LAMIVUDIN [Suspect]
     Indication: HEPATITIS B
     Route: 065

REACTIONS (19)
  - Intentional self-injury [Unknown]
  - Pyrexia [Recovered/Resolved]
  - Headache [Recovered/Resolved]
  - Weight decreased [Unknown]
  - Leukopenia [Recovered/Resolved]
  - Fatigue [Recovered/Resolved]
  - Thrombocytopenia [Recovered/Resolved]
  - Arthralgia [Recovered/Resolved]
  - Mood swings [Recovered/Resolved]
  - Neutropenia [Recovered/Resolved]
  - Cell death [Recovered/Resolved]
  - Alopecia [Recovered/Resolved]
  - Abdominal pain [Recovered/Resolved]
  - Sleep disorder [Recovered/Resolved]
  - Myalgia [Recovered/Resolved]
  - Thyroid disorder [Recovered/Resolved]
  - Glucose tolerance impaired [Recovered/Resolved]
  - Xerosis [Recovered/Resolved]
  - Deafness [Recovered/Resolved]
